FAERS Safety Report 18404718 (Version 1)
Quarter: 2020Q4

REPORT INFORMATION
  Report Type: Spontaneous
  Country: US (occurrence: US)
  Receive Date: 20201020
  Receipt Date: 20201020
  Transmission Date: 20210114
  Serious: Yes (Death, Hospitalization, Other)
  Sender: FDA-Public Use
  Company Number: US-MICRO LABS LIMITED-ML2020-03100

PATIENT
  Age: 41 Year
  Sex: Female

DRUGS (9)
  1. MANNITOL. [Suspect]
     Active Substance: MANNITOL
     Indication: BRAIN OEDEMA
  2. ALTEPLASE. [Concomitant]
     Active Substance: ALTEPLASE
     Dosage: 1 DOSE OF INTRA-VENTRICULAR ALTEPLASE 1 MG PER DAY FOR A TOTAL OF 3 DOSES
  3. ACETAZOLAMIDE. [Suspect]
     Active Substance: ACETAZOLAMIDE
     Indication: BRAIN OEDEMA
  4. MANNITOL. [Suspect]
     Active Substance: MANNITOL
     Indication: INTRACRANIAL PRESSURE INCREASED
  5. ETHINYLESTRADIOL [Concomitant]
     Active Substance: ETHINYL ESTRADIOL
  6. HEPARIN [Concomitant]
     Active Substance: HEPARIN SODIUM
     Route: 042
  7. ACETAZOLAMIDE. [Suspect]
     Active Substance: ACETAZOLAMIDE
     Indication: INTRACRANIAL PRESSURE INCREASED
  8. DROSPIRENONE [Concomitant]
     Active Substance: DROSPIRENONE
  9. ALTEPLASE. [Concomitant]
     Active Substance: ALTEPLASE
     Dosage: 10 MG IN 510 ML OF NORMAL SALINE

REACTIONS (1)
  - Drug ineffective [Fatal]
